FAERS Safety Report 6451230-9 (Version None)
Quarter: 2009Q4

REPORT INFORMATION
  Report Type: 
  Country: None (occurrence: None)
  Receive Date: 20091123
  Receipt Date: 20091119
  Transmission Date: 20100525
  Serious: Yes (Other)
  Sender: FDA-Public Use
  Company Number: US-B.I. PHARMACEUTICALS,INC./RIDGEFIELD-2009-BP-13414BP

PATIENT
  Age: 74 Year
  Sex: Male

DRUGS (3)
  1. FLOMAX [Suspect]
     Indication: BENIGN PROSTATIC HYPERPLASIA
     Dosage: 0.8 MG
     Route: 048
     Dates: start: 20060101
  2. CADUET [Concomitant]
     Indication: BLOOD CHOLESTEROL INCREASED
  3. NORVASC [Concomitant]
     Indication: BLOOD PRESSURE INCREASED

REACTIONS (2)
  - NOCTURIA [None]
  - RENAL CANCER [None]
